FAERS Safety Report 8294518-1 (Version None)
Quarter: 2012Q2

REPORT INFORMATION
  Report Type: 
  Country: None (occurrence: None)
  Receive Date: 20120418
  Receipt Date: 20120411
  Transmission Date: 20120825
  Serious: Yes (Hospitalization, Other)
  Sender: FDA-Public Use
  Company Number: US-BAYER-2012-017517

PATIENT
  Age: 30 Year
  Sex: Female
  Weight: 59 kg

DRUGS (4)
  1. DROSPIRENONE AND ETHINYL ESTRADIOL [Suspect]
     Indication: CONTRACEPTION
     Dosage: UNK
     Dates: start: 20090201
  2. DIOVAN [Concomitant]
     Dosage: 160 MG, QD
     Dates: start: 20111217
  3. HYDROCODONE [Concomitant]
     Dosage: UNK UNK, PRN
     Dates: start: 20111217
  4. LEVOTHYROXINE SODIUM [Concomitant]
     Dosage: 75 MCG AT BEDTIME
     Dates: start: 20111217

REACTIONS (5)
  - MIGRAINE [None]
  - DEEP VEIN THROMBOSIS [None]
  - CHEST PAIN [None]
  - PAIN [None]
  - PULMONARY EMBOLISM [None]
